FAERS Safety Report 6553081-3 (Version None)
Quarter: 2010Q1

REPORT INFORMATION
  Report Type: 
  Country: None (occurrence: None)
  Receive Date: 20100127
  Receipt Date: 20090407
  Transmission Date: 20100710
  Serious: No
  Sender: FDA-Public Use
  Company Number: A0757872A

PATIENT
  Age: 56 Year
  Sex: Female

DRUGS (11)
  1. IMITREX [Suspect]
     Indication: MIGRAINE
     Dosage: 6MG AS REQUIRED
     Route: 048
     Dates: start: 20070101
  2. GSK AUTOINJECTOR [Suspect]
     Indication: DRUG USE FOR UNKNOWN INDICATION
  3. DEPAKOTE [Concomitant]
  4. VERAPAMIL [Concomitant]
  5. MAXZIDE [Concomitant]
  6. CYMBALTA [Concomitant]
  7. XANAX [Concomitant]
  8. NEXIUM [Concomitant]
  9. DONNATAL [Concomitant]
  10. PREMARIN [Concomitant]
  11. AMBIEN [Concomitant]

REACTIONS (4)
  - DEVICE MALFUNCTION [None]
  - DRUG ADMINISTRATION ERROR [None]
  - PRODUCT QUALITY ISSUE [None]
  - THERAPEUTIC RESPONSE UNEXPECTED [None]
